FAERS Safety Report 11699078 (Version 1)
Quarter: 2015Q4

REPORT INFORMATION
  Report Type: Spontaneous
  Country: US (occurrence: US)
  Receive Date: 20151104
  Receipt Date: 20151104
  Transmission Date: 20160304
  Serious: Yes (Other)
  Sender: FDA-Public Use
  Company Number: US-AMNEAL PHARMACEUTICALS-2015AMN00176

PATIENT
  Sex: Male
  Weight: 83.9 kg

DRUGS (1)
  1. HYDROCODONE AND ACETAMINOPHEN [Suspect]
     Active Substance: ACETAMINOPHEN\HYDROCODONE
     Indication: PAIN
     Dosage: UNK
     Route: 048
     Dates: start: 20150905

REACTIONS (5)
  - Drug ineffective [Not Recovered/Not Resolved]
  - Counterfeit drug administered [Not Recovered/Not Resolved]
  - Product label counterfeit [Not Recovered/Not Resolved]
  - Product packaging counterfeit [Not Recovered/Not Resolved]
  - Product counterfeit [Not Recovered/Not Resolved]
